FAERS Safety Report 6202486-9 (Version None)
Quarter: 2009Q2

REPORT INFORMATION
  Report Type: 
  Country: None (occurrence: None)
  Receive Date: 20090518
  Receipt Date: 20090317
  Transmission Date: 20091009
  Serious: No
  Sender: FDA-Public Use
  Company Number: WAES 0903USA02935

PATIENT
  Age: 76 Year
  Sex: Male

DRUGS (4)
  1. JANUVIA [Suspect]
     Indication: TYPE 2 DIABETES MELLITUS
     Dosage: 100 MG/DAILY/PO
     Route: 048
     Dates: start: 20070101
  2. ZOLOFT [Concomitant]
  3. AMLODIPINE [Concomitant]
  4. TIOXAPROFEN [Concomitant]

REACTIONS (3)
  - PAIN [None]
  - RASH GENERALISED [None]
  - SKIN HAEMORRHAGE [None]
